FAERS Safety Report 21236998 (Version 1)
Quarter: 2022Q3

REPORT INFORMATION
  Report Type: Spontaneous
  Country: US (occurrence: US)
  Receive Date: 20220822
  Receipt Date: 20220822
  Transmission Date: 20221027
  Serious: No
  Sender: FDA-Public Use
  Company Number: US-STRIDES ARCOLAB LIMITED-2022SP004074

PATIENT
  Sex: Female

DRUGS (5)
  1. RANITIDINE [Suspect]
     Active Substance: RANITIDINE
     Indication: Dyspepsia
     Dosage: 150 MILLIGRAM, BID
     Route: 048
  2. IRON [Suspect]
     Active Substance: IRON
     Indication: Anaemia
     Dosage: UNK INFUSION
     Route: 065
  3. VITAMIN D NOS [Suspect]
     Active Substance: VITAMIN D NOS
     Indication: Gastric bypass
     Dosage: 5000 UNITS PER DAY
     Route: 065
  4. VITAMIN D NOS [Suspect]
     Active Substance: VITAMIN D NOS
     Indication: Surgery
  5. MAGNESIUM OXIDE [Suspect]
     Active Substance: MAGNESIUM OXIDE
     Indication: Migraine
     Dosage: 400 MILLIGRAM, BID
     Route: 048

REACTIONS (1)
  - Maternal exposure during pregnancy [Unknown]
